FAERS Safety Report 14331580 (Version 1)
Quarter: 2017Q4

REPORT INFORMATION
  Report Type: Spontaneous
  Country: US (occurrence: US)
  Receive Date: 20171228
  Receipt Date: 20171228
  Transmission Date: 20180321
  Serious: Yes (Other)
  Sender: FDA-Public Use
  Company Number: US-BIOGEN-2017BI00502620

PATIENT
  Sex: Female
  Weight: 45.3 kg

DRUGS (1)
  1. TECFIDERA [Suspect]
     Active Substance: DIMETHYL FUMARATE
     Indication: MULTIPLE SCLEROSIS
     Route: 065

REACTIONS (9)
  - Type 1 diabetes mellitus [Unknown]
  - Heart rate increased [Unknown]
  - Nausea [Unknown]
  - Asthenia [Unknown]
  - Dysstasia [Unknown]
  - Head discomfort [Unknown]
  - Loss of consciousness [Unknown]
  - Feeling hot [Unknown]
  - Flushing [Unknown]
